FAERS Safety Report 19690957 (Version 1)
Quarter: 2021Q3

REPORT INFORMATION
  Report Type: Spontaneous
  Country: US (occurrence: US)
  Receive Date: 20210812
  Receipt Date: 20210812
  Transmission Date: 20211014
  Serious: No
  Sender: FDA-Public Use
  Company Number: None

PATIENT
  Age: 77 Year
  Sex: Female
  Weight: 51.5 kg

DRUGS (1)
  1. AZITHROMYCIN 500MG / NS 250 ML [Suspect]
     Active Substance: AZITHROMYCIN
     Route: 042

REACTIONS (7)
  - Abdominal pain lower [None]
  - Pruritus [None]
  - Abdominal pain upper [None]
  - Chills [None]
  - Dyspnoea [None]
  - Infusion site erythema [None]
  - Infusion site pain [None]

NARRATIVE: CASE EVENT DATE: 20210810
